FAERS Safety Report 22254292 (Version 1)
Quarter: 2023Q2

REPORT INFORMATION
  Report Type: Spontaneous
  Country: US (occurrence: US)
  Receive Date: 20230426
  Receipt Date: 20230426
  Transmission Date: 20230722
  Serious: No
  Sender: FDA-Public Use
  Company Number: US-AMGEN-USASP2023069147

PATIENT
  Age: 33 Year
  Sex: Female

DRUGS (4)
  1. CARFILZOMIB [Suspect]
     Active Substance: CARFILZOMIB
     Indication: Immune tolerance induction
     Dosage: UNK UNK, 2 TIMES/WK
     Route: 065
  2. CARFILZOMIB [Suspect]
     Active Substance: CARFILZOMIB
     Indication: Off label use
  3. BELATACEPT [Concomitant]
     Active Substance: BELATACEPT
     Indication: Immune tolerance induction
     Dosage: 10 MILLIGRAM/KILOGRAM, DAYS 1, 5, 9, 15, AND 29
     Route: 065
  4. BELATACEPT [Concomitant]
     Active Substance: BELATACEPT
     Dosage: 5 MILLIGRAM/KILOGRAM, EVERY 28 DAYS.
     Route: 065

REACTIONS (1)
  - Off label use [Unknown]
